FAERS Safety Report 21008259 (Version 2)
Quarter: 2022Q3

REPORT INFORMATION
  Report Type: Spontaneous
  Country: US (occurrence: US)
  Receive Date: 20220627
  Receipt Date: 20220912
  Transmission Date: 20221027
  Serious: No
  Sender: FDA-Public Use
  Company Number: US-BIOGEN-2022BI01125668

PATIENT
  Age: 43 Year
  Sex: Male

DRUGS (15)
  1. VUMERITY [Suspect]
     Active Substance: DIROXIMEL FUMARATE
     Indication: Multiple sclerosis
     Dosage: TAKE 2 CAPSULES (462MG) BY MOUTH TWICE DAILY.
     Route: 050
  2. VUMERITY [Suspect]
     Active Substance: DIROXIMEL FUMARATE
     Route: 050
  3. ZINC [Concomitant]
     Active Substance: ZINC
     Route: 050
  4. VITAMIN D3 [Concomitant]
     Active Substance: CHOLECALCIFEROL
     Route: 050
  5. VITAMIN C [Concomitant]
     Active Substance: ASCORBIC ACID
     Route: 050
  6. OLEA EUROPAEA LEAF [Concomitant]
     Active Substance: OLEA EUROPAEA LEAF
     Route: 050
  7. COPPER [Concomitant]
     Active Substance: COPPER
     Route: 050
  8. ASTRAGALUS [Concomitant]
     Route: 050
  9. VITAMIN A [Concomitant]
     Active Substance: VITAMIN A
     Route: 050
  10. MAGNESIUM CITRATE [Concomitant]
     Active Substance: MAGNESIUM CITRATE
     Route: 050
  11. BIOTIN [Concomitant]
     Active Substance: BIOTIN
     Route: 050
  12. CITRIC ACID [Concomitant]
     Active Substance: CITRIC ACID MONOHYDRATE
     Route: 050
  13. IRON [Concomitant]
     Active Substance: IRON
     Route: 050
  14. TESTOSTERONE [Concomitant]
     Active Substance: TESTOSTERONE
     Route: 050
  15. CALCIUM CITRATE [Concomitant]
     Active Substance: CALCIUM CITRATE
     Route: 050

REACTIONS (11)
  - Product dose omission in error [Recovered/Resolved]
  - Temperature intolerance [Not Recovered/Not Resolved]
  - Humidity intolerance [Not Recovered/Not Resolved]
  - Loss of control of legs [Unknown]
  - Arthralgia [Unknown]
  - Head discomfort [Unknown]
  - Gait disturbance [Unknown]
  - Facial pain [Unknown]
  - Feeling hot [Unknown]
  - Abdominal pain upper [Recovered/Resolved]
  - Flushing [Unknown]

NARRATIVE: CASE EVENT DATE: 20220328
